FAERS Safety Report 5244399-5 (Version None)
Quarter: 2007Q1

REPORT INFORMATION
  Report Type: 
  Country: None (occurrence: None)
  Receive Date: 20070222
  Receipt Date: 20070216
  Transmission Date: 20070707
  Serious: Yes (Other)
  Sender: FDA-Public Use
  Company Number: 2007AP01130

PATIENT
  Age: 56 Year
  Sex: Female

DRUGS (2)
  1. TENORMIN [Suspect]
     Dosage: 20 TABLETS
     Route: 048
  2. UNSPECIFIED DRUGS [Suspect]

REACTIONS (1)
  - OVERDOSE [None]
